FAERS Safety Report 9308567 (Version 1)
Quarter: 2013Q2

REPORT INFORMATION
  Report Type: Spontaneous
  Country: US (occurrence: US)
  Receive Date: 20130524
  Receipt Date: 20130524
  Transmission Date: 20140414
  Serious: Yes (Other)
  Sender: FDA-Public Use
  Company Number: CHPA2013US008642

PATIENT
  Age: 74 Year
  Sex: Male

DRUGS (2)
  1. BENEFIBER UNKNOWN [Suspect]
     Indication: BOWEL MOVEMENT IRREGULARITY
     Dosage: UNK, PRN
     Route: 048
     Dates: start: 2012
  2. METAMUCIL [Concomitant]
     Indication: BOWEL MOVEMENT IRREGULARITY
     Dosage: UNK, UNK

REACTIONS (5)
  - Intervertebral disc degeneration [Not Recovered/Not Resolved]
  - Sciatica [Not Recovered/Not Resolved]
  - Pain in extremity [Not Recovered/Not Resolved]
  - Back pain [Not Recovered/Not Resolved]
  - Off label use [Unknown]
